FAERS Safety Report 11503306 (Version 14)
Quarter: 2017Q4

REPORT INFORMATION
  Report Type: Spontaneous
  Country: US (occurrence: US)
  Receive Date: 20150914
  Receipt Date: 20171012
  Transmission Date: 20180320
  Serious: Yes (Hospitalization, Other)
  Sender: FDA-Public Use
  Company Number: US-ASTELLAS-2015US026206

PATIENT
  Age: 71 Year
  Sex: Male

DRUGS (1)
  1. XTANDI [Suspect]
     Active Substance: ENZALUTAMIDE
     Indication: PROSTATE CANCER
     Route: 048
     Dates: start: 201503, end: 201710

REACTIONS (22)
  - Loss of consciousness [Unknown]
  - Dizziness [Unknown]
  - Quality of life decreased [Unknown]
  - Back pain [Unknown]
  - Prostatic specific antigen increased [Unknown]
  - Arthralgia [Unknown]
  - Blood pressure increased [Recovered/Resolved]
  - Rib fracture [Unknown]
  - Joint swelling [Unknown]
  - Temperature intolerance [Unknown]
  - Peripheral swelling [Unknown]
  - Nausea [Not Recovered/Not Resolved]
  - Fatigue [Not Recovered/Not Resolved]
  - Musculoskeletal discomfort [Unknown]
  - Drug ineffective [Unknown]
  - Malignant neoplasm progression [Unknown]
  - Constipation [Recovered/Resolved]
  - Head injury [Unknown]
  - Anion gap increased [Unknown]
  - Fluid retention [Recovered/Resolved]
  - Neck pain [Unknown]
  - Prostatic specific antigen increased [Unknown]

NARRATIVE: CASE EVENT DATE: 201509
